FAERS Safety Report 10624693 (Version 1)
Quarter: 2014Q4

REPORT INFORMATION
  Report Type: Report from Study
  Country: NL (occurrence: NL)
  Receive Date: 20141204
  Receipt Date: 20141204
  Transmission Date: 20150529
  Serious: Yes (Other)
  Sender: FDA-Public Use
  Company Number: NL-AMGEN-NLDSL2013094578

PATIENT
  Age: 68 Year
  Sex: Female

DRUGS (1)
  1. XGEVA [Suspect]
     Active Substance: DENOSUMAB
     Indication: PRODUCT USED FOR UNKNOWN INDICATION
     Dosage: 1.7 ML (70MG/ML), Q4WK
     Route: 065
     Dates: start: 20121221

REACTIONS (8)
  - Inflammation [Unknown]
  - Osteomyelitis [Unknown]
  - Musculoskeletal chest pain [Unknown]
  - Pain [Unknown]
  - Metastasis [Unknown]
  - Hormone level abnormal [Unknown]
  - Tumour marker increased [Unknown]
  - Bone pain [Unknown]
